FAERS Safety Report 17412829 (Version 2)
Quarter: 2021Q3

REPORT INFORMATION
  Report Type: Spontaneous
  Country: US (occurrence: US)
  Receive Date: 20200213
  Receipt Date: 20210820
  Transmission Date: 20211014
  Serious: Yes (Life-Threatening, Hospitalization)
  Sender: FDA-Public Use
  Company Number: US-JAZZ-2020-US-001967

PATIENT
  Age: 3 Year
  Sex: Male
  Weight: 21.6 kg

DRUGS (16)
  1. VINCRISTINE [Suspect]
     Active Substance: VINCRISTINE
     Indication: ACUTE LYMPHOCYTIC LEUKAEMIA
     Dosage: 1.14 MILLIGRAM, ONE TIME (DAYS 43 AND 50)
     Route: 042
     Dates: start: 20190821
  2. CYTARABINE. [Suspect]
     Active Substance: CYTARABINE
     Indication: ACUTE LYMPHOCYTIC LEUKAEMIA
     Dosage: 57 MILLIGRAM (DAYS 29?32 AND 36?39)
     Route: 042
     Dates: start: 20190924
  3. METHOTREXATE. [Suspect]
     Active Substance: METHOTREXATE
     Dosage: 12 MILLIGRAM. ONE TIME ON 1 AND 31
     Route: 037
     Dates: start: 20191107
  4. METHOTREXATE. [Suspect]
     Active Substance: METHOTREXATE
     Dosage: STARTING DOSE 100 MG/M2 AND ESCALATE BY 50MG/M2/DOSE ? DAY 1,11, 21, 31, AND 41
     Route: 042
     Dates: start: 20191211
  5. LORAZEPAM. [Concomitant]
     Active Substance: LORAZEPAM
     Indication: PRODUCT USED FOR UNKNOWN INDICATION
  6. VINCRISTINE [Suspect]
     Active Substance: VINCRISTINE
     Dosage: 1.14 MILLIGRAM, ONE TIME (DAYS 1, 11, 21, 31, AND 41)
     Route: 042
     Dates: start: 20191107, end: 20191206
  7. CYPROHEPTADINE. [Concomitant]
     Active Substance: CYPROHEPTADINE
     Indication: PRODUCT USED FOR UNKNOWN INDICATION
  8. ASPARAGINASE [Suspect]
     Active Substance: ASPARAGINASE
     Dosage: 19000, DAYS 2 AND 22 PER PROTOCOL THREE TIMES PER WEEK X2 WEEKS FOR EACH DOSE
     Route: 030
     Dates: start: 20191108
  9. THIOGUANINE [Suspect]
     Active Substance: THIOGUANINE
     Indication: ACUTE LYMPHOCYTIC LEUKAEMIA
     Dosage: 45 MILLIGRAM (DAYS 29?42)
     Route: 048
     Dates: start: 20190924
  10. METHOTREXATE. [Suspect]
     Active Substance: METHOTREXATE
     Indication: ACUTE LYMPHOCYTIC LEUKAEMIA
     Dosage: 12 MILLIGRAM ONE TIME (DAYS 1, 29 AND 36)
     Route: 037
     Dates: start: 20190821
  11. METHOTREXATE. [Suspect]
     Active Substance: METHOTREXATE
     Dosage: STARTING DOSE 100 MG/M2 AND ESCALATE BY 50MG1RN2/DOSE ? DAY 1, 11, 21, 31, AND 41
     Route: 042
     Dates: start: 20191107, end: 20191206
  12. METHOTREXATE. [Suspect]
     Active Substance: METHOTREXATE
     Dosage: 12 MILLIGRAM, ONE TIME ON DAYS 1 AND 31
     Route: 037
     Dates: start: 20191211
  13. ASPARAGINASE [Suspect]
     Active Substance: ASPARAGINASE
     Indication: ACUTE LYMPHOCYTIC LEUKAEMIA
     Dosage: 19000, THREE TIMES PER WEEK X2 WEEKS
     Route: 030
     Dates: start: 20190821
  14. VINCRISTINE [Suspect]
     Active Substance: VINCRISTINE
     Dosage: 1.14 MILLIGRAM, ONE TIME (DAYS 1, 11, 21, 31, AND 41)
     Route: 042
     Dates: start: 20191211
  15. CYCLOPHOSPHAMIDE. [Suspect]
     Active Substance: CYCLOPHOSPHAMIDE
     Indication: ACUTE LYMPHOCYTIC LEUKAEMIA
     Dosage: 760 MILLIGRAM, ONCE (DAY 29)
     Route: 042
     Dates: start: 20190924
  16. BACTRIM [Concomitant]
     Active Substance: SULFAMETHOXAZOLE\TRIMETHOPRIM
     Indication: PRODUCT USED FOR UNKNOWN INDICATION

REACTIONS (8)
  - Dehydration [Recovered/Resolved]
  - Decreased appetite [Recovering/Resolving]
  - Lethargy [Recovered/Resolved]
  - Mucosal inflammation [Recovered/Resolved]
  - Abdominal pain [Recovered/Resolved]
  - Hypoglycaemia [Recovered/Resolved]
  - Vomiting [Recovered/Resolved]
  - Constipation [Recovered/Resolved]
